FAERS Safety Report 15243848 (Version 2)
Quarter: 2018Q3

REPORT INFORMATION
  Report Type: Spontaneous
  Country: JP (occurrence: JP)
  Receive Date: 20180806
  Receipt Date: 20180821
  Transmission Date: 20181010
  Serious: Yes (Other)
  Sender: FDA-Public Use
  Company Number: JP-ALSI-201800480

PATIENT

DRUGS (1)
  1. OXYGEN. [Suspect]
     Active Substance: OXYGEN
     Indication: NEONATAL RESPIRATORY DISTRESS SYNDROME
     Route: 055

REACTIONS (1)
  - Retinopathy of prematurity [Recovered/Resolved]
